FAERS Safety Report 7459929-2 (Version None)
Quarter: 2011Q2

REPORT INFORMATION
  Report Type: 
  Country: None (occurrence: None)
  Receive Date: 20110427
  Receipt Date: 20110415
  Transmission Date: 20111010
  Serious: Yes (Hospitalization)
  Sender: FDA-Public Use
  Company Number: 031263

PATIENT
  Sex: Female

DRUGS (9)
  1. FOLIC ACID [Concomitant]
  2. CIMZIA [Suspect]
     Indication: RHEUMATOID ARTHRITIS
     Dosage: (400 MG 1X/2 WEEKS SUBCUTANEOUS)
     Route: 058
     Dates: start: 20101112, end: 20101217
  3. OXYCODONE HYDROCHLORIDE [Concomitant]
  4. ATENOLOL [Concomitant]
  5. PREDNISOLONE [Concomitant]
  6. MORPHINE SULFATE [Concomitant]
  7. CELECOXIB [Concomitant]
  8. METHOTREXATE [Concomitant]
  9. DIAZEPAM [Concomitant]

REACTIONS (1)
  - CELLULITIS [None]
